FAERS Safety Report 7716489-6 (Version None)
Quarter: 2011Q3

REPORT INFORMATION
  Report Type: 
  Country: None (occurrence: None)
  Receive Date: 20110829
  Receipt Date: 20110818
  Transmission Date: 20111222
  Serious: Yes (Hospitalization)
  Sender: FDA-Public Use
  Company Number: US-B.I. PHARMACEUTICALS,INC./RIDGEFIELD-2011-DE-04670GD

PATIENT
  Age: 65 Year
  Sex: Female

DRUGS (6)
  1. FUROSEMIDE [Concomitant]
     Indication: HYPERTENSION
     Dosage: 160 MG
  2. AMLODIPINE [Concomitant]
     Indication: HYPERTENSION
     Dosage: 10 MG
  3. CLONIDINE [Suspect]
     Indication: HYPERTENSION
     Dosage: 0.2 MG
  4. HYDRALAZINE HCL [Concomitant]
     Indication: HYPERTENSION
     Dosage: 200 MG
  5. LISINOPRIL [Concomitant]
     Indication: HYPERTENSION
     Dosage: 40 MG
  6. METOPROLOL TARTRATE [Suspect]
     Indication: HYPERTENSION
     Dosage: 100 MG

REACTIONS (4)
  - SINUS ARRHYTHMIA [None]
  - SINUS BRADYCARDIA [None]
  - DYSARTHRIA [None]
  - VISION BLURRED [None]
